FAERS Safety Report 21122801 (Version 1)
Quarter: 2022Q3

REPORT INFORMATION
  Report Type: Spontaneous
  Country: US (occurrence: US)
  Receive Date: 20220723
  Receipt Date: 20220723
  Transmission Date: 20221027
  Serious: No
  Sender: FDA-Public Use
  Company Number: US-BRISTOL-MYERS SQUIBB COMPANY-2022-057831

PATIENT
  Age: 84 Year
  Sex: Male

DRUGS (3)
  1. SPRYCEL [Suspect]
     Active Substance: DASATINIB
     Indication: Chronic myeloid leukaemia (in remission)
     Route: 048
     Dates: start: 20220519, end: 20220613
  2. SPRYCEL [Suspect]
     Active Substance: DASATINIB
     Indication: Prostate cancer
  3. SPRYCEL [Suspect]
     Active Substance: DASATINIB
     Indication: Psoriatic arthropathy

REACTIONS (6)
  - Headache [Unknown]
  - Diarrhoea [Unknown]
  - Arthralgia [Unknown]
  - Periorbital swelling [Unknown]
  - Palpitations [Unknown]
  - Lip exfoliation [Unknown]
